FAERS Safety Report 13916111 (Version 1)
Quarter: 2017Q3

REPORT INFORMATION
  Report Type: Spontaneous
  Country: US (occurrence: None)
  Receive Date: 20170827
  Receipt Date: 20170827
  Transmission Date: 20171127
  Serious: No
  Sender: FDA-Public Use
  Company Number: None

PATIENT
  Sex: Female

DRUGS (3)
  1. IBRANCE [Suspect]
     Active Substance: PALBOCICLIB
     Indication: BREAST CANCER FEMALE
     Dosage: 125 MG ONCE DAILY FOR 21 DAYS AND 7 DAYS OFF BY MOUTH
     Route: 048
     Dates: start: 20170714, end: 20170804
  2. IBRANCE [Suspect]
     Active Substance: PALBOCICLIB
     Indication: BREAST CANCER FEMALE
     Dosage: 75 MG ONCE DAILY FOR 21 DAYS ON AND 7 DAYS BY MOUTH?
     Route: 048
     Dates: start: 20170823
  3. IBRANCE [Suspect]
     Active Substance: PALBOCICLIB
     Indication: BREAST CANCER
     Dosage: 75 MG ONCE DAILY FOR 21 DAYS ON AND 7 DAYS BY MOUTH?
     Route: 048
     Dates: start: 20170823

REACTIONS (1)
  - Diarrhoea [None]
